FAERS Safety Report 21397350 (Version 1)
Quarter: 2022Q3

REPORT INFORMATION
  Report Type: Spontaneous
  Country: US (occurrence: US)
  Receive Date: 20220930
  Receipt Date: 20220930
  Transmission Date: 20221026
  Serious: No
  Sender: FDA-Public Use
  Company Number: US-BIOVITRUM-2022US08259

PATIENT
  Age: 44 Year
  Sex: Female

DRUGS (2)
  1. KINERET [Suspect]
     Active Substance: ANAKINRA
     Indication: Pyrexia
     Dates: start: 20200717
  2. KINERET [Suspect]
     Active Substance: ANAKINRA
     Dates: start: 20200716

REACTIONS (11)
  - Pyrexia [Unknown]
  - Condition aggravated [Unknown]
  - Pain [Unknown]
  - Eye disorder [Unknown]
  - Arterial disorder [Unknown]
  - Alopecia [Unknown]
  - Muscle spasms [Unknown]
  - Injection site pain [Unknown]
  - Injection site pruritus [Unknown]
  - Injection site rash [Unknown]
  - Off label use [Unknown]

NARRATIVE: CASE EVENT DATE: 20200717
